FAERS Safety Report 21006003 (Version 2)
Quarter: 2022Q3

REPORT INFORMATION
  Report Type: Spontaneous
  Country: CH (occurrence: CH)
  Receive Date: 20220624
  Receipt Date: 20220708
  Transmission Date: 20221027
  Serious: Yes (Other)
  Sender: FDA-Public Use
  Company Number: CH-ANIPHARMA-2022-CH-000025

PATIENT
  Age: 83 Year
  Sex: Female

DRUGS (8)
  1. CANDESARTAN CILEXETIL [Suspect]
     Active Substance: CANDESARTAN CILEXETIL
     Indication: Hypertension
     Dosage: 8 MG DAILY
     Route: 065
     Dates: start: 20191017
  2. METOPROLOL SUCCINATE [Suspect]
     Active Substance: METOPROLOL SUCCINATE
     Dosage: 100 MG DAILY/50 MG DAILY
     Route: 065
     Dates: start: 20220510
  3. ATORVASTATIN [Suspect]
     Active Substance: ATORVASTATIN
     Dosage: 20 MG DAILY
     Route: 065
     Dates: start: 20191008, end: 20220510
  4. PANTOPRAZOLE [Suspect]
     Active Substance: PANTOPRAZOLE
     Dosage: 20 MG DAILY
     Route: 065
     Dates: end: 20220510
  5. ASPIRIN [Concomitant]
     Active Substance: ASPIRIN
     Route: 065
     Dates: start: 2016
  6. MALTOFER [Concomitant]
     Route: 065
     Dates: start: 20220509
  7. ENOXAPARIN SODIUM [Concomitant]
     Active Substance: ENOXAPARIN SODIUM
     Route: 065
     Dates: start: 20220509, end: 20220509
  8. SODIUM PICOSULFATE [Concomitant]
     Active Substance: SODIUM PICOSULFATE
     Route: 048
     Dates: start: 20220509

REACTIONS (3)
  - Muscular weakness [Not Recovered/Not Resolved]
  - Blood creatine phosphokinase [Not Recovered/Not Resolved]
  - Immune-mediated myositis [Not Recovered/Not Resolved]

NARRATIVE: CASE EVENT DATE: 20210501
